FAERS Safety Report 8052549-0 (Version None)
Quarter: 2012Q1

REPORT INFORMATION
  Report Type: 
  Country: None (occurrence: None)
  Receive Date: 20120112
  Receipt Date: 20120105
  Transmission Date: 20120608
  Serious: Yes (Hospitalization)
  Sender: FDA-Public Use
  Company Number: 1000026739

PATIENT
  Age: 80 Year
  Sex: Female
  Weight: 40.37 kg

DRUGS (15)
  1. ALBUTEROL (ALBUTEROL) (ALBUTEROL) [Concomitant]
  2. CARAFATE (SUCRALFATE) (SUCRALFATE) [Concomitant]
  3. NICOTINE PATCH (NICOTINE PATCH) (NICOTINE PATCH) [Concomitant]
  4. COMBIVENT (COMBIVENT) (COMBIVENT) [Concomitant]
  5. ALDACTONE [Concomitant]
  6. PROTONIX (PANTOPRAZOLE SODIUM SESQUIHYDRATE) (PANTOPRAZOLE SODIUM SESQ [Concomitant]
  7. ASPIRIN [Concomitant]
  8. ZOLPIDEM (ZOLPIDEM) (ZOLPIDEM) [Concomitant]
  9. DALIRESP [Suspect]
     Indication: CHRONIC OBSTRUCTIVE PULMONARY DISEASE
     Dosage: 500 MCG (500 MCG, 1 IN 1 D), ORAL
     Route: 048
     Dates: start: 20111001, end: 20111214
  10. PROVENTIL (ALBUTEROL) (ALBUTEROL) [Concomitant]
  11. DILTIAZEM (DILTIAZEM HYDROCHLORIDE) (DILTIAZEM HYDROCHLORIDE) [Concomitant]
  12. MIRALAX (POLYETHYLENE GLYCOL) (POLYETHYLENE GLYCOL) [Concomitant]
  13. TYLENOL (ACETAMINOPHEN) (ACETAMINOPHEN) [Concomitant]
  14. SPIRIVA (TIOTROPIUM BROMIDE) (TIOTROPIUM BROMIDE) [Concomitant]
  15. LOMOTIL (LOMOTIL) (LOMOTIL) [Concomitant]

REACTIONS (3)
  - DYSPNOEA [None]
  - DIARRHOEA [None]
  - ABDOMINAL PAIN [None]
